FAERS Safety Report 24678356 (Version 1)
Quarter: 2024Q4

REPORT INFORMATION
  Report Type: Spontaneous
  Country: US (occurrence: US)
  Receive Date: 20241129
  Receipt Date: 20241129
  Transmission Date: 20250115
  Serious: Yes (Hospitalization, Other)
  Sender: DR REDDYS
  Company Number: US-DRL-USA-LIT/USA/24/0017453

PATIENT
  Age: 64 Year
  Sex: Male

DRUGS (2)
  1. SEVELAMER [Suspect]
     Active Substance: SEVELAMER
     Indication: Blood phosphorus increased
  2. HEPARIN [Suspect]
     Active Substance: HEPARIN SODIUM
     Indication: Atrial flutter
     Dosage: HEPARIN DRIP

REACTIONS (5)
  - Colitis ulcerative [Unknown]
  - Anaemia [Unknown]
  - Melaena [Unknown]
  - Crystal deposit intestine [Unknown]
  - Product use in unapproved indication [Unknown]
